FAERS Safety Report 15938384 (Version 1)
Quarter: 2019Q1

REPORT INFORMATION
  Report Type: Spontaneous
  Country: US (occurrence: US)
  Receive Date: 20190208
  Receipt Date: 20190208
  Transmission Date: 20190417
  Serious: Yes (Life-Threatening)
  Sender: FDA-Public Use
  Company Number: None

PATIENT
  Age: 54 Year
  Sex: Male
  Weight: 72 kg

DRUGS (1)
  1. OLMEZEST - AMLODIPINE AND OLMESARTAN [Suspect]
     Active Substance: AMLODIPINE\OLMESARTAN
     Indication: BLOOD PRESSURE MANAGEMENT
     Dosage: ?          OTHER STRENGTH:5 MG AMLODIPINE;QUANTITY:10 TABLET(S);?
     Route: 048
     Dates: start: 20140101, end: 20180531

REACTIONS (1)
  - Nasopharyngeal cancer [None]

NARRATIVE: CASE EVENT DATE: 20180601
